FAERS Safety Report 5941815-8 (Version None)
Quarter: 2008Q4

REPORT INFORMATION
  Report Type: 
  Country: None (occurrence: None)
  Receive Date: 20081105
  Receipt Date: 20081030
  Transmission Date: 20090506
  Serious: Yes (Hospitalization, Other)
  Sender: FDA-Public Use
  Company Number: PHHY2008BE24259

PATIENT
  Sex: Female

DRUGS (9)
  1. RASILEZ [Interacting]
     Indication: HYPERTENSION
     Dosage: 150 MG DAILY
     Route: 048
     Dates: start: 20080825, end: 20080918
  2. CAPTOPRIL [Suspect]
     Dosage: 50 MG
     Dates: end: 20081014
  3. AMARYL [Concomitant]
  4. METFORMAX [Concomitant]
  5. PLAVIX [Concomitant]
  6. ASPIRIN [Concomitant]
  7. CORUNO [Concomitant]
  8. SIMVASTATIN [Concomitant]
  9. CEDOCARD [Concomitant]

REACTIONS (8)
  - BLOOD ELECTROLYTES ABNORMAL [None]
  - BLOOD UREA INCREASED [None]
  - CARDIAC FAILURE ACUTE [None]
  - DRUG INTERACTION [None]
  - HYPERKALAEMIA [None]
  - LABORATORY TEST INTERFERENCE [None]
  - RENAL ARTERY STENOSIS [None]
  - STENT PLACEMENT [None]
